FAERS Safety Report 24231625 (Version 1)
Quarter: 2024Q3

REPORT INFORMATION
  Report Type: Spontaneous
  Country: US (occurrence: US)
  Receive Date: 20240821
  Receipt Date: 20240821
  Transmission Date: 20241016
  Serious: Yes (Other)
  Sender: AILEX PHARMACEUTICALS
  Company Number: AP-2024-US-001356

PATIENT
  Sex: Male

DRUGS (3)
  1. CROMOLYN SODIUM [Suspect]
     Active Substance: CROMOLYN SODIUM
  2. CROMOLYN SODIUM [Suspect]
     Active Substance: CROMOLYN SODIUM
  3. AYVAKIT [Suspect]
     Active Substance: AVAPRITINIB
     Indication: Malignant mast cell neoplasm
     Dosage: 25 MG, QD
     Route: 065
     Dates: start: 20240521

REACTIONS (2)
  - Hypersensitivity [Unknown]
  - Condition aggravated [Unknown]
